FAERS Safety Report 6640582-2 (Version None)
Quarter: 2010Q1

REPORT INFORMATION
  Report Type: 
  Country: None (occurrence: None)
  Receive Date: 20100318
  Receipt Date: 20100311
  Transmission Date: 20100710
  Serious: Yes (Other)
  Sender: FDA-Public Use
  Company Number: JP-MERCK-1003USA02339

PATIENT
  Age: 67 Year
  Sex: Male

DRUGS (9)
  1. JANUVIA [Suspect]
     Indication: DIABETES MELLITUS
     Route: 048
     Dates: start: 20100124, end: 20100222
  2. AVAPRO [Concomitant]
     Indication: HYPERTENSION
     Route: 048
  3. CALBLOCK [Concomitant]
     Indication: HYPERTENSION
     Route: 048
  4. ALLOPURINOL [Concomitant]
     Indication: HYPERURICAEMIA
     Route: 048
  5. MAINTATE [Concomitant]
     Indication: HYPERTENSION
     Route: 048
  6. KREMEZIN [Concomitant]
     Indication: RENAL FAILURE CHRONIC
     Route: 048
     Dates: start: 20100207
  7. EPOGIN [Concomitant]
     Indication: ANAEMIA
     Route: 041
     Dates: start: 20100207
  8. LASIX [Concomitant]
     Indication: OEDEMA
     Route: 065
  9. TANATRIL [Concomitant]
     Indication: HYPERTENSION
     Route: 048

REACTIONS (1)
  - BLOOD CREATININE INCREASED [None]
